FAERS Safety Report 5001900-4 (Version None)
Quarter: 2006Q2

REPORT INFORMATION
  Report Type: 
  Country: None (occurrence: None)
  Receive Date: 20060515
  Receipt Date: 20050104
  Transmission Date: 20061013
  Serious: Yes (Disabling)
  Sender: FDA-Public Use
  Company Number: US-MERCK-0501USA00363

PATIENT
  Age: 42 Year
  Sex: Female
  Weight: 54 kg

DRUGS (4)
  1. VIOXX [Suspect]
     Indication: ARTHRALGIA
     Route: 048
     Dates: start: 20021001, end: 20021101
  2. VIOXX [Suspect]
     Route: 048
     Dates: start: 20021001, end: 20021101
  3. VIOXX [Suspect]
     Indication: JOINT SWELLING
     Route: 048
     Dates: start: 20021001, end: 20021101
  4. VIOXX [Suspect]
     Route: 048
     Dates: start: 20021001, end: 20021101

REACTIONS (3)
  - BRONCHITIS [None]
  - CEREBROVASCULAR ACCIDENT [None]
  - DEPRESSION [None]
